FAERS Safety Report 7828762-1 (Version None)
Quarter: 2011Q4

REPORT INFORMATION
  Report Type: 
  Country: None (occurrence: None)
  Receive Date: 20111020
  Receipt Date: 20101021
  Transmission Date: 20120403
  Serious: No
  Sender: FDA-Public Use
  Company Number: US-MYLANLABS-2010S1003792

PATIENT
  Age: 82 Year
  Sex: Female

DRUGS (14)
  1. CARVEDILOL [Suspect]
     Indication: BLOOD PRESSURE INCREASED
     Route: 048
     Dates: start: 20081128
  2. CARVEDILOL [Suspect]
     Indication: CARDIAC FAILURE
     Route: 048
     Dates: start: 20081128
  3. SIMVASTATIN [Suspect]
     Route: 048
     Dates: end: 20100701
  4. VITAMIN TAB [Concomitant]
  5. CARVEDILOL [Suspect]
     Route: 048
     Dates: end: 20090101
  6. SYNTHROID [Concomitant]
  7. ASCORBIC ACID [Concomitant]
  8. ASPIRIN [Concomitant]
  9. CARVEDILOL [Suspect]
     Route: 048
     Dates: start: 20090101
  10. CLARITIN [Concomitant]
  11. CARVEDILOL [Suspect]
     Route: 048
     Dates: end: 20090101
  12. CAL-MAG /01226301/ [Concomitant]
  13. CARVEDILOL [Suspect]
     Route: 048
     Dates: start: 20090101
  14. NASALCROM [Concomitant]

REACTIONS (6)
  - BALANCE DISORDER [None]
  - PLATELET COUNT DECREASED [None]
  - WHITE BLOOD CELL COUNT DECREASED [None]
  - DIZZINESS [None]
  - FATIGUE [None]
  - MUSCULAR WEAKNESS [None]
